FAERS Safety Report 5603397-X (Version None)
Quarter: 2008Q1

REPORT INFORMATION
  Report Type: 
  Country: None (occurrence: None)
  Receive Date: 20080123
  Receipt Date: 20071206
  Transmission Date: 20080703
  Serious: Yes (Hospitalization)
  Sender: FDA-Public Use
  Company Number: 026#4#2007-00002

PATIENT
  Sex: Female

DRUGS (1)
  1. ROTIGOTINE (DOSE UNKNOWN0, UNKNOWN (ROTIGOTINE) [Suspect]

REACTIONS (8)
  - ACCIDENTAL EXPOSURE [None]
  - DIZZINESS [None]
  - DYSPHAGIA [None]
  - HEADACHE [None]
  - MALAISE [None]
  - OVERDOSE [None]
  - PHARYNGEAL HYPOAESTHESIA [None]
  - VOMITING [None]
